FAERS Safety Report 6538419-5 (Version None)
Quarter: 2010Q1

REPORT INFORMATION
  Report Type: 
  Country: None (occurrence: None)
  Receive Date: 20100114
  Receipt Date: 20090319
  Transmission Date: 20100710
  Serious: No
  Sender: FDA-Public Use
  Company Number: US-TYCO HEALTHCARE/MALLINCKRODT-T200900723

PATIENT
  Sex: Female
  Weight: 74.83 kg

DRUGS (4)
  1. OXYCODONE HCL AND ACETAMINOPHEN [Suspect]
     Indication: NECK PAIN
     Dosage: 5/325 MG, 1/2 TAB EVERY 8 HRS.
     Route: 048
     Dates: start: 20090313, end: 20090319
  2. OXYCODONE HCL AND ACETAMINOPHEN [Suspect]
     Indication: BACK PAIN
  3. NEURONTIN [Concomitant]
     Indication: NERVOUS SYSTEM DISORDER
     Dosage: UNK
     Route: 048
     Dates: start: 20081001
  4. OXYCODONE HCL AND ACETAMINOPHEN [Concomitant]
     Indication: PAIN
     Dosage: 5/325 MG, 1/2 TAB EVERY 8 HRS.
     Route: 048
     Dates: start: 20081101, end: 20090313

REACTIONS (6)
  - ABDOMINAL DISCOMFORT [None]
  - DIARRHOEA [None]
  - DYSPEPSIA [None]
  - HEADACHE [None]
  - NAUSEA [None]
  - TREMOR [None]
